FAERS Safety Report 16260627 (Version 1)
Quarter: 2019Q2

REPORT INFORMATION
  Report Type: Spontaneous
  Country: NL (occurrence: NL)
  Receive Date: 20190501
  Receipt Date: 20190501
  Transmission Date: 20190711
  Serious: Yes (Other)
  Sender: FDA-Public Use
  Company Number: NL-MYLANLABS-2019M1041011

PATIENT
  Sex: Male
  Weight: 81 kg

DRUGS (5)
  1. DICLOFENAC [Concomitant]
     Active Substance: DICLOFENAC
     Dosage: 25 MILLIGRAM, Q6H(4 X PER DAG 1 TABLET)
     Dates: start: 2008
  2. ENTOCORT [Concomitant]
     Active Substance: BUDESONIDE
     Dosage: 1 DOSAGE FORM(1 X PER DAG 0-3 CAPSULES)
     Dates: start: 20180125
  3. VENLAFAXINE [Concomitant]
     Active Substance: VENLAFAXINE HYDROCHLORIDE
     Dosage: 75 MILLIGRAM, QD(1 X PER DAG 1 CAPSULE)
  4. OMEPRAZOLE. [Suspect]
     Active Substance: OMEPRAZOLE
     Indication: PROPHYLAXIS
     Dosage: 1 DOSAGE FORM, QD(1 X PER DAG)
     Route: 048
     Dates: start: 20180125, end: 201806
  5. PARACETAMOL [Concomitant]
     Active Substance: ACETAMINOPHEN
     Dosage: 500 MILLIGRAM, Q6H(4 X PER DAG 1 TABLET)
     Dates: start: 2018

REACTIONS (2)
  - Depressed mood [Recovered/Resolved]
  - Suicidal ideation [Recovered/Resolved]
